FAERS Safety Report 6619008-0 (Version None)
Quarter: 2010Q1

REPORT INFORMATION
  Report Type: 
  Country: None (occurrence: None)
  Receive Date: 20100308
  Receipt Date: 20100205
  Transmission Date: 20100710
  Serious: No
  Sender: FDA-Public Use
  Company Number: US-BAYER-201011790BCC

PATIENT
  Age: 66 Year
  Sex: Female
  Weight: 79 kg

DRUGS (4)
  1. ALEVE [Suspect]
     Indication: ARTHRITIS
     Dosage: TOTAL DAILY DOSE: 440 MG  UNIT DOSE: 220 MG
     Route: 048
     Dates: start: 20100101
  2. METFORMIN HYDROCHLORIDE [Concomitant]
  3. UNKNOWN MULTIVITAMIN [Concomitant]
  4. LASIX [Concomitant]

REACTIONS (4)
  - ABDOMINAL PAIN UPPER [None]
  - DIARRHOEA [None]
  - FAECES DISCOLOURED [None]
  - NAUSEA [None]
